FAERS Safety Report 4350044-3 (Version None)
Quarter: 2004Q2

REPORT INFORMATION
  Report Type: 
  Country: None (occurrence: None)
  Receive Date: 20040429
  Receipt Date: 20040420
  Transmission Date: 20050107
  Serious: Yes (Hospitalization)
  Sender: FDA-Public Use
  Company Number: PHBS2004DK05513

PATIENT
  Age: 3 Month
  Sex: Female

DRUGS (3)
  1. TEGRETOL [Suspect]
     Indication: EPILEPSY
     Dosage: 75 MG, BID
     Route: 048
     Dates: start: 20040329, end: 20040402
  2. BRICANYL [Concomitant]
     Indication: ASTHMA
     Dosage: 1 ML, PRN
     Dates: start: 20040315
  3. TRIMONIL [Suspect]
     Dates: start: 20040219, end: 20040328

REACTIONS (3)
  - FLUID RETENTION [None]
  - PULMONARY CONGESTION [None]
  - WEIGHT INCREASED [None]
